FAERS Safety Report 5823341-X (Version None)
Quarter: 2008Q3

REPORT INFORMATION
  Report Type: 
  Country: None (occurrence: None)
  Receive Date: 20080725
  Receipt Date: 20080716
  Transmission Date: 20090109
  Serious: Yes (Death)
  Sender: FDA-Public Use
  Company Number: GB-PURDUE-GBR_2008_0003990

PATIENT
  Age: 37 Year
  Sex: Female

DRUGS (5)
  1. OXYNORM INJECTION 10MG/ML [Suspect]
     Indication: ANALGESIA
     Dosage: 180 MG, DAILY
     Route: 058
     Dates: start: 20070928, end: 20080422
  2. MIDAZOLAM HCL [Concomitant]
     Indication: ANXIETY
     Dosage: 70 MG, DAILY
     Route: 058
     Dates: start: 20080107, end: 20080422
  3. NOZINAN [Concomitant]
     Indication: NAUSEA
     Dosage: 6.25 MG, DAILY
     Route: 058
     Dates: start: 20070928, end: 20080422
  4. CLONAZEPAM [Concomitant]
     Indication: ANXIETY
     Dosage: .5 MG, DAILY
     Route: 058
     Dates: start: 20071226, end: 20080422
  5. HYOSCINE [Concomitant]
     Indication: MUSCLE SPASMS
     Dosage: 60 MG, DAILY
     Route: 058
     Dates: start: 20070929, end: 20071111

REACTIONS (4)
  - DISEASE PROGRESSION [None]
  - INFUSION SITE IRRITATION [None]
  - INFUSION SITE MASS [None]
  - INJECTION SITE VESICLES [None]
